FAERS Safety Report 7575446-3 (Version None)
Quarter: 2011Q2

REPORT INFORMATION
  Report Type: 
  Country: None (occurrence: None)
  Receive Date: 20110627
  Receipt Date: 20110614
  Transmission Date: 20111010
  Serious: Yes (Other)
  Sender: FDA-Public Use
  Company Number: GB-ELI_LILLY_AND_COMPANY-GB201106003605

PATIENT
  Age: 69 Year

DRUGS (6)
  1. METFORMIN HCL [Concomitant]
     Indication: DIABETES MELLITUS
     Dosage: 1 G, UNKNOWN
     Route: 048
  2. BYETTA [Suspect]
     Dosage: UNK, UNKNOWN
  3. SILDENAFIL CITRATE [Concomitant]
  4. BYETTA [Suspect]
     Dosage: 10 UG, BID
  5. ATORVASTATIN [Concomitant]
     Indication: BLOOD CHOLESTEROL INCREASED
     Dosage: 20 MG, UNKNOWN
     Route: 048
  6. GLICLAZIDE [Concomitant]
     Indication: DIABETES MELLITUS
     Dosage: 80 MG, UNKNOWN
     Route: 048

REACTIONS (2)
  - SKIN REACTION [None]
  - ERYTHEMA [None]
